FAERS Safety Report 5781943-3 (Version None)
Quarter: 2008Q2

REPORT INFORMATION
  Report Type: 
  Country: None (occurrence: None)
  Receive Date: 20080623
  Receipt Date: 20080619
  Transmission Date: 20081010
  Serious: Yes (Hospitalization)
  Sender: FDA-Public Use
  Company Number: B0525673A

PATIENT
  Age: 71 Year
  Sex: Female

DRUGS (6)
  1. AMOXICILLIN [Suspect]
     Dosage: 1G THREE TIMES PER DAY
     Route: 048
     Dates: start: 20080516, end: 20080522
  2. AMOXICILLINE + ACIDE CLAVULANIQUE [Suspect]
     Route: 065
     Dates: start: 20080425
  3. CIPROFLOXACIN HCL [Suspect]
     Dosage: 500MG TWICE PER DAY
     Route: 048
     Dates: start: 20080516, end: 20080520
  4. OFLOCET [Suspect]
     Route: 048
     Dates: start: 20080514, end: 20080515
  5. SERETIDE [Concomitant]
     Indication: DRUG USE FOR UNKNOWN INDICATION
     Dosage: 500MCG THREE TIMES PER DAY
     Route: 065
  6. OMEPRAZOLE [Concomitant]
     Route: 065
     Dates: start: 20030101

REACTIONS (2)
  - BLOOD LACTATE DEHYDROGENASE INCREASED [None]
  - THROMBOCYTOPENIA [None]
